FAERS Safety Report 9856691 (Version 2)
Quarter: 2014Q2

REPORT INFORMATION
  Report Type: Spontaneous
  Country: TR (occurrence: None)
  Receive Date: 20140109
  Receipt Date: 20140109
  Transmission Date: 20141212
  Serious: Yes (Other)
  Sender: FDA-Public Use
  Company Number: 7260025

PATIENT
  Age: 48 Year
  Sex: Female

DRUGS (5)
  1. REBIF [Suspect]
     Indication: RELAPSING-REMITTING MULTIPLE SCLEROSIS
     Route: 058
     Dates: start: 201308
  2. LEVOTHYROXINE [Suspect]
     Indication: HYPOTHYROIDISM
     Route: 048
     Dates: start: 201212
  3. PANADOL [Suspect]
     Indication: HEADACHE
     Route: 048
     Dates: start: 201308
  4. CALCIMAX [Suspect]
     Indication: CALCIUM DEFICIENCY
     Route: 048
     Dates: start: 201212
  5. CALCIMAX [Suspect]
     Indication: VITAMIN D DEFICIENCY
     Route: 048
     Dates: start: 201212

REACTIONS (3)
  - Gastric ulcer [None]
  - Aspartate aminotransferase increased [None]
  - Alanine aminotransferase increased [None]
